FAERS Safety Report 22255180 (Version 1)
Quarter: 2023Q2

REPORT INFORMATION
  Report Type: Spontaneous
  Country: US (occurrence: US)
  Receive Date: 20230426
  Receipt Date: 20230426
  Transmission Date: 20230721
  Serious: Yes (Hospitalization, Other)
  Sender: FDA-Public Use
  Company Number: US-HORIZON THERAPEUTICS-HZN-2023-001541

PATIENT

DRUGS (5)
  1. PROCYSBI [Suspect]
     Active Substance: CYSTEAMINE BITARTRATE
     Indication: Cystinosis
     Dosage: 750 MG
     Route: 065
     Dates: start: 20190131
  2. PROCYSBI [Suspect]
     Active Substance: CYSTEAMINE BITARTRATE
     Dosage: TAKE (300 MG) ONE PACKET BY G-TUBE TWO TIMES DAILY WITH 75 MG PACKET. TOTAL DOSE OF 375 MG TWICE DAI
  3. PROCYSBI [Suspect]
     Active Substance: CYSTEAMINE BITARTRATE
     Dosage: TAKE (300 MG) ONE PACKET BY G-TUBE TWO TIMES DAILY WITH 75 MG PACKET. TOTAL DOSE OF 375 MG TWICE DAI
  4. PROCYSBI [Suspect]
     Active Substance: CYSTEAMINE BITARTRATE
     Dosage: 75 MG, BID (TAKE ONE 75MG PACKET DAILY WITH ONE 300MG PACKET BY G-TUBE TWO TIMES DAILY)
  5. PROCYSBI [Suspect]
     Active Substance: CYSTEAMINE BITARTRATE
     Dosage: 370 MG (TAKE ONE 75MG PACKET DAILY WITH ONE 300MG PACKET BY G-TUBE TWO TIMES DAILY)

REACTIONS (8)
  - Seizure [Not Recovered/Not Resolved]
  - Chronic kidney disease [Unknown]
  - Hypokalaemia [Unknown]
  - Blood electrolytes decreased [Recovering/Resolving]
  - Blood potassium abnormal [Recovering/Resolving]
  - Nasopharyngitis [Recovering/Resolving]
  - Influenza like illness [Recovering/Resolving]
  - Hypophosphataemia [Unknown]

NARRATIVE: CASE EVENT DATE: 20230201
